FAERS Safety Report 8240323-1 (Version None)
Quarter: 2012Q1

REPORT INFORMATION
  Report Type: 
  Country: None (occurrence: None)
  Receive Date: 20120328
  Receipt Date: 20120328
  Transmission Date: 20120608
  Serious: Yes (Hospitalization)
  Sender: FDA-Public Use
  Company Number: None

PATIENT
  Age: 61 Year
  Sex: Male
  Weight: 147.41 kg

DRUGS (2)
  1. LEVOFLOXACIN [Suspect]
     Indication: PROSTATITIS
     Dosage: 750MG
     Route: 048
     Dates: start: 20110720, end: 20110730
  2. LEVOFLOXACIN [Concomitant]
     Dosage: 500MG
     Route: 054
     Dates: start: 20120104, end: 20120114

REACTIONS (3)
  - PULMONARY EMBOLISM [None]
  - MOBILITY DECREASED [None]
  - TENDON RUPTURE [None]
